FAERS Safety Report 7712408-7 (Version None)
Quarter: 2011Q3

REPORT INFORMATION
  Report Type: 
  Country: None (occurrence: None)
  Receive Date: 20110826
  Receipt Date: 20110823
  Transmission Date: 20111222
  Serious: Yes (Hospitalization)
  Sender: FDA-Public Use
  Company Number: JP-ROCHE-798721

PATIENT
  Sex: Female

DRUGS (3)
  1. LEUCOVORIN CALCIUM [Concomitant]
     Dosage: DOSAGE IS UNCERTAIN, DRUG REPORTED AS LEVOFOLINATE CALCIUM
     Route: 041
  2. AVASTIN [Suspect]
     Indication: LARGE INTESTINE CARCINOMA
     Route: 041
  3. FLUOROURACIL [Concomitant]
     Dosage: DOSAGE IS UNCERTAIN
     Route: 041

REACTIONS (2)
  - FALL [None]
  - FEMORAL NECK FRACTURE [None]
